FAERS Safety Report 15526802 (Version 1)
Quarter: 2018Q4

REPORT INFORMATION
  Report Type: Spontaneous
  Country: US (occurrence: US)
  Receive Date: 20181018
  Receipt Date: 20181018
  Transmission Date: 20190205
  Serious: No
  Sender: FDA-Public Use
  Company Number: US-BAYER-2018-193924

PATIENT
  Age: 54 Year
  Sex: Male
  Weight: 108.84 kg

DRUGS (4)
  1. GADAVIST [Suspect]
     Active Substance: GADOBUTROL
     Indication: HYPOAESTHESIA
  2. GADAVIST [Suspect]
     Active Substance: GADOBUTROL
     Indication: NUCLEAR MAGNETIC RESONANCE IMAGING
     Dosage: 12 ML, ONCE
     Route: 042
     Dates: start: 20180628, end: 20180628
  3. ZYRTEC [Concomitant]
     Active Substance: CETIRIZINE HYDROCHLORIDE
     Dosage: UNK
  4. GADAVIST [Suspect]
     Active Substance: GADOBUTROL
     Indication: COLON CANCER

REACTIONS (4)
  - Nasal congestion [Recovered/Resolved]
  - Inflammation [Recovered/Resolved]
  - Lacrimation increased [Recovered/Resolved]
  - Eye swelling [Not Recovered/Not Resolved]

NARRATIVE: CASE EVENT DATE: 20180628
